FAERS Safety Report 9438565 (Version 2)
Quarter: 2013Q3

REPORT INFORMATION
  Report Type: Spontaneous
  Country: US (occurrence: US)
  Receive Date: 20130802
  Receipt Date: 20130819
  Transmission Date: 20140515
  Serious: Yes (Death, Life-Threatening, Disabling, Other)
  Sender: FDA-Public Use
  Company Number: US-GLAXOSMITHKLINE-A1036174A

PATIENT
  Age: 74 Year
  Sex: Female
  Weight: 78.6 kg

DRUGS (1)
  1. ARIXTRA [Suspect]
     Indication: THROMBOSIS PROPHYLAXIS
     Dosage: 7.5MG UNKNOWN
     Route: 065
     Dates: start: 20130619, end: 20130724

REACTIONS (2)
  - Malignant neoplasm progression [Fatal]
  - Disease complication [Fatal]
